FAERS Safety Report 11242468 (Version 1)
Quarter: 2015Q3

REPORT INFORMATION
  Report Type: Spontaneous
  Country: GB (occurrence: GB)
  Receive Date: 20150707
  Receipt Date: 20150707
  Transmission Date: 20151125
  Serious: Yes (Death, Other)
  Sender: FDA-Public Use
  Company Number: GB-009507513-1507GBR002586

PATIENT
  Age: 7 Decade
  Sex: Male

DRUGS (2)
  1. DEXAMETHASONE. [Suspect]
     Active Substance: DEXAMETHASONE
     Indication: PLASMA CELL MYELOMA
     Route: 048
  2. BORTEZOMIB [Suspect]
     Active Substance: BORTEZOMIB
     Indication: PLASMA CELL MYELOMA

REACTIONS (8)
  - Psychiatric symptom [Unknown]
  - Constipation [Unknown]
  - Anaemia [Unknown]
  - Neuropathy peripheral [Unknown]
  - Renal failure [Unknown]
  - Bone pain [Unknown]
  - Fatigue [Unknown]
  - Disease progression [Fatal]
